FAERS Safety Report 16976490 (Version 2)
Quarter: 2019Q4

REPORT INFORMATION
  Report Type: Report from Study
  Country: US (occurrence: US)
  Receive Date: 20191030
  Receipt Date: 20191205
  Transmission Date: 20200122
  Serious: Yes (Hospitalization)
  Sender: FDA-Public Use
  Company Number: US-ACTELION-A-US2016-133393

PATIENT
  Age: 66 Year
  Sex: Male
  Weight: 99.77 kg

DRUGS (6)
  1. UPTRAVI [Suspect]
     Active Substance: SELEXIPAG
     Indication: PULMONARY ARTERIAL HYPERTENSION
     Dosage: 200 MCG, BID
     Route: 048
     Dates: start: 20160308
  2. UPTRAVI [Suspect]
     Active Substance: SELEXIPAG
     Dosage: 800 MCG, BID
     Route: 048
     Dates: start: 20160304
  3. TYVASO [Suspect]
     Active Substance: TREPROSTINIL
     Indication: PULMONARY HYPERTENSION
     Dosage: 18-90 MCG, QID
     Route: 055
     Dates: start: 20130128
  4. OPSUMIT [Suspect]
     Active Substance: MACITENTAN
     Indication: PULMONARY ARTERIAL HYPERTENSION
     Dosage: 10 MG, QD
     Route: 048
     Dates: start: 20150515, end: 20180810
  5. UPTRAVI [Suspect]
     Active Substance: SELEXIPAG
     Dosage: 1000 MCG, BID
     Route: 048
  6. SILDENAFIL. [Concomitant]
     Active Substance: SILDENAFIL

REACTIONS (19)
  - Pulmonary hypertension [Unknown]
  - Product use issue [Unknown]
  - Sleep apnoea syndrome [Unknown]
  - Tremor [Unknown]
  - Ascites [Not Recovered/Not Resolved]
  - Dyspnoea paroxysmal nocturnal [Unknown]
  - Dyspnoea [Recovered/Resolved with Sequelae]
  - Paraesthesia [Not Recovered/Not Resolved]
  - Diarrhoea [Unknown]
  - Migraine [Recovered/Resolved]
  - Weight decreased [Not Recovered/Not Resolved]
  - Gait disturbance [Unknown]
  - Pain in jaw [Not Recovered/Not Resolved]
  - Muscle spasms [Unknown]
  - Oedema peripheral [Unknown]
  - Hepatojugular reflux [Unknown]
  - Arrhythmia [Recovered/Resolved]
  - Headache [Unknown]
  - Pain in extremity [Not Recovered/Not Resolved]

NARRATIVE: CASE EVENT DATE: 201508
